FAERS Safety Report 6292574-3 (Version None)
Quarter: 2009Q3

REPORT INFORMATION
  Report Type: 
  Country: None (occurrence: None)
  Receive Date: 20090731
  Receipt Date: 20090728
  Transmission Date: 20100115
  Serious: Yes (Death, Life-Threatening)
  Sender: FDA-Public Use
  Company Number: AT-ASTRAZENECA-2009SE06043

PATIENT
  Age: 84 Year
  Sex: Female
  Weight: 80 kg

DRUGS (9)
  1. ACECOMB [Suspect]
     Indication: HYPERTONIA
     Route: 048
  2. LASIX [Suspect]
  3. ANTIBIOPHILUS [Concomitant]
  4. DOXIUM [Concomitant]
  5. EUTHYROX [Concomitant]
  6. LESCOL [Concomitant]
  7. PANTOPRAZOLE SODIUM [Concomitant]
  8. TEBOFORTAN [Concomitant]
  9. INSULIN MIX 20 [Concomitant]

REACTIONS (3)
  - DEHYDRATION [None]
  - MYOCARDIAL INFARCTION [None]
  - RENAL FAILURE CHRONIC [None]
